FAERS Safety Report 24994125 (Version 2)
Quarter: 2025Q1

REPORT INFORMATION
  Report Type: Spontaneous
  Country: IT (occurrence: IT)
  Receive Date: 20250221
  Receipt Date: 20250310
  Transmission Date: 20250408
  Serious: Yes (Life-Threatening, Other)
  Sender: AUROBINDO
  Company Number: IT-MINISAL02-1023520

PATIENT
  Age: 22 Year
  Sex: Male
  Weight: 90 kg

DRUGS (5)
  1. ARIPIPRAZOLE [Suspect]
     Active Substance: ARIPIPRAZOLE
     Indication: Product used for unknown indication
     Route: 048
     Dates: start: 20220709, end: 20220709
  2. XANAX [Suspect]
     Active Substance: ALPRAZOLAM
     Indication: Product used for unknown indication
     Route: 048
     Dates: start: 20220709, end: 20220709
  3. VENLAFAXINE HYDROCHLORIDE [Suspect]
     Active Substance: VENLAFAXINE HYDROCHLORIDE
     Indication: Product used for unknown indication
     Route: 048
     Dates: start: 20220709, end: 20220709
  4. TEGRETOL [Suspect]
     Active Substance: CARBAMAZEPINE
     Indication: Product used for unknown indication
     Route: 048
     Dates: start: 20220709, end: 20220709
  5. TACHIPIRINA [Suspect]
     Active Substance: ACETAMINOPHEN
     Indication: Product used for unknown indication
     Route: 048
     Dates: start: 20220709, end: 20220709

REACTIONS (5)
  - Intentional self-injury [Recovered/Resolved]
  - Drug abuse [Recovered/Resolved]
  - Coma [Recovered/Resolved]
  - Psychomotor hyperactivity [Recovered/Resolved]
  - Aggression [Recovered/Resolved]

NARRATIVE: CASE EVENT DATE: 20220709
